FAERS Safety Report 15653275 (Version 1)
Quarter: 2018Q4

REPORT INFORMATION
  Report Type: Report from Study
  Country: None (occurrence: TR)
  Receive Date: 20181123
  Receipt Date: 20181123
  Transmission Date: 20190205
  Serious: Yes (Other)
  Sender: FDA-Public Use
  Company Number: TR-ABBVIE-18K-161-2506813-00

PATIENT
  Age: 27 Year
  Sex: Female
  Weight: 57 kg

DRUGS (8)
  1. METPAMID [Concomitant]
     Active Substance: METOCLOPRAMIDE
     Indication: PREGNANCY
     Route: 048
     Dates: start: 20180929
  2. CYMBALTA [Concomitant]
     Active Substance: DULOXETINE HYDROCHLORIDE
     Indication: ANTIDEPRESSANT THERAPY
     Route: 048
     Dates: start: 2016, end: 20180927
  3. CORASPIN [Concomitant]
     Active Substance: ASPIRIN
     Indication: PRODUCT USED FOR UNKNOWN INDICATION
     Route: 048
     Dates: start: 20180929
  4. HUMIRA [Suspect]
     Active Substance: ADALIMUMAB
     Indication: PSORIASIS
     Route: 058
     Dates: start: 20180813, end: 20180927
  5. HUMIRA [Suspect]
     Active Substance: ADALIMUMAB
     Route: 058
     Dates: start: 20181010
  6. PROGESTAN [Concomitant]
     Active Substance: PROGESTERONE
     Indication: PREGNANCY
     Dosage: MORNING: 1X1??EVENING: 1X2
     Route: 048
     Dates: start: 20180929
  7. GYNOFERON [Concomitant]
     Indication: PREGNANCY
     Dosage: 80 / 0.35 MG
     Route: 048
     Dates: start: 20180929
  8. FOLIC PLUS [Concomitant]
     Indication: PREGNANCY
     Route: 048
     Dates: start: 20180929

REACTIONS (2)
  - Selective abortion [Unknown]
  - Exposure during pregnancy [Unknown]

NARRATIVE: CASE EVENT DATE: 20181010
